FAERS Safety Report 10498477 (Version 3)
Quarter: 2014Q4

REPORT INFORMATION
  Report Type: Spontaneous
  Country: US (occurrence: US)
  Receive Date: 20141006
  Receipt Date: 20141202
  Transmission Date: 20150528
  Serious: Yes (Disabling, Other)
  Sender: FDA-Public Use
  Company Number: US-JNJFOC-20141001063

PATIENT
  Sex: Male

DRUGS (4)
  1. ULTRAM [Suspect]
     Active Substance: TRAMADOL HYDROCHLORIDE
     Indication: PAIN
     Dosage: 50MG - 100MG, TABLETS 1 OR 2 TABLETS EVERY 4 HOURS AS NEEDED.
     Route: 048
  2. ULTRAM [Suspect]
     Active Substance: TRAMADOL HYDROCHLORIDE
     Indication: PAIN
     Dosage: 50MG, TABLETS, 1 OR 2 TABLETS EVERY 4 HOURS AS NEEDED
     Route: 048
  3. ULTRAM [Suspect]
     Active Substance: TRAMADOL HYDROCHLORIDE
     Indication: PAIN
     Dosage: 50MG - 100MG, TABLETS 1 OR 2 TABLETS EVERY 4 HOURS AS NEEDED.
     Route: 048
  4. CIPRO [Suspect]
     Active Substance: CIPROFLOXACIN HYDROCHLORIDE
     Indication: OSTEOMYELITIS CHRONIC
     Route: 048

REACTIONS (1)
  - Tendon rupture [Not Recovered/Not Resolved]

NARRATIVE: CASE EVENT DATE: 2014
